FAERS Safety Report 4697365-2 (Version None)
Quarter: 2005Q2

REPORT INFORMATION
  Report Type: 
  Country: None (occurrence: None)
  Receive Date: 20050621
  Receipt Date: 20050608
  Transmission Date: 20051028
  Serious: Yes (Hospitalization)
  Sender: FDA-Public Use
  Company Number: USA020312605

PATIENT
  Age: 62 Year
  Sex: Female

DRUGS (10)
  1. HUMULIN 70/30 [Suspect]
     Indication: DIABETES MELLITUS
     Dosage: 98 U DAY
     Dates: start: 20010101, end: 20050607
  2. HUMALOG MIX 75/25 [Suspect]
     Indication: DIABETES MELLITUS
     Dosage: 40 U DAY
     Dates: start: 20050607
  3. PROPRANOLOL [Concomitant]
  4. ESTROGENS CONJUGATED HORMONE REPLACEMENT THERAPY [Concomitant]
  5. LORAZEPAM [Concomitant]
  6. CELECOXIB [Concomitant]
  7. NIZATIDINE [Concomitant]
  8. PEPCID AC [Concomitant]
  9. NITROFURANTOIN [Concomitant]
  10. LEVAQUIN [Concomitant]

REACTIONS (18)
  - BLADDER DISORDER [None]
  - BLOOD GLUCOSE DECREASED [None]
  - BLOOD GLUCOSE INCREASED [None]
  - CHEST PAIN [None]
  - COLITIS [None]
  - DIABETIC COMPLICATION [None]
  - DRUG DOSE OMISSION [None]
  - DRUG INEFFECTIVE [None]
  - FATIGUE [None]
  - KIDNEY INFECTION [None]
  - MALAISE [None]
  - PAIN [None]
  - PAIN IN EXTREMITY [None]
  - PHARMACEUTICAL PRODUCT COMPLAINT [None]
  - SOMNOLENCE [None]
  - SURGERY [None]
  - URINARY TRACT INFECTION [None]
  - VOMITING [None]
